FAERS Safety Report 4691005-4 (Version None)
Quarter: 2005Q2

REPORT INFORMATION
  Report Type: 
  Country: None (occurrence: None)
  Receive Date: 20050610
  Receipt Date: 20050530
  Transmission Date: 20051028
  Serious: Yes (Hospitalization, Disabling)
  Sender: FDA-Public Use
  Company Number: 2005081991

PATIENT
  Sex: Male
  Weight: 72 kg

DRUGS (4)
  1. LINEZOLID TABLET (LINEZOLID) [Suspect]
     Indication: ILL-DEFINED DISORDER
     Dosage: 1200 MG (ONCE) ORAL
     Route: 048
     Dates: start: 20050127, end: 20050228
  2. INSULATARD HM (INSULIN HUMAN INJECTION, ISOPHANE) [Concomitant]
  3. ASPIRIN [Concomitant]
  4. SORTIS (ATORVASTATIN) [Concomitant]

REACTIONS (4)
  - DRUG INEFFECTIVE [None]
  - IMPAIRED HEALING [None]
  - STAPHYLOCOCCAL INFECTION [None]
  - WOUND INFECTION [None]
